FAERS Safety Report 9912087 (Version 3)
Quarter: 2014Q3

REPORT INFORMATION
  Report Type: Spontaneous
  Country: JP (occurrence: JP)
  Receive Date: 20140219
  Receipt Date: 20140904
  Transmission Date: 20150326
  Serious: Yes (Hospitalization)
  Sender: FDA-Public Use
  Company Number: JP-009507513-1402JPN008726

PATIENT
  Age: 96 Year
  Sex: Male

DRUGS (11)
  1. DIAZOXIDE CAPSULES 25 MG ^MSD^ [Suspect]
     Active Substance: DIAZOXIDE
     Dosage: 50 MG, QD
     Route: 048
     Dates: start: 20120403
  2. VOGLIBOSE [Concomitant]
     Active Substance: VOGLIBOSE
     Indication: DIABETES MELLITUS
     Dosage: 0.2 MG, QD,DIVIDED DOSE FREQUENCY UNKNOWN
     Route: 048
  3. KREMEZIN [Concomitant]
     Active Substance: ACTIVATED CHARCOAL
     Indication: CARDIAC FAILURE CHRONIC
     Dosage: 6 G, QD,DIVIDED DOSE FREQUENCY UNKNOWN
     Route: 048
  4. GASMOTIN [Concomitant]
     Active Substance: MOSAPRIDE CITRATE
     Indication: GASTRITIS
     Dosage: 15 MG, QD,DIVIDED DOSE FREQUENCY UNKNOWN
     Route: 048
  5. DENOPAMINE [Concomitant]
     Active Substance: DENOPAMINE
     Indication: CARDIAC FAILURE CHRONIC
     Dosage: 15 MG, QD, DIVIDED DOSE FREQUENCY UNKNOWN
     Route: 048
  6. ALLOZYM [Concomitant]
     Active Substance: ALLOPURINOL
     Indication: HYPERURICAEMIA
     Dosage: 100 MG, QD, DIVIDED DOSE FREQUENCY UNKNOWN
     Route: 048
  7. DIAZOXIDE CAPSULES 25 MG ^MSD^ [Suspect]
     Active Substance: DIAZOXIDE
     Dosage: 12.5 MG, QD
     Route: 048
     Dates: end: 20120501
  8. DIAZOXIDE CAPSULES 25 MG ^MSD^ [Suspect]
     Active Substance: DIAZOXIDE
     Indication: HYPOGLYCAEMIA
     Dosage: 25 MG, QD
     Route: 048
     Dates: start: 20120302, end: 20120402
  9. DIAZOXIDE CAPSULES 25 MG ^MSD^ [Suspect]
     Active Substance: DIAZOXIDE
     Dosage: 25 MG, QD
     Route: 048
     Dates: start: 20120706, end: 20130301
  10. FUROSEMIDE. [Concomitant]
     Active Substance: FUROSEMIDE
     Indication: CARDIAC FAILURE CHRONIC
     Dosage: 60 MG, QD,DIVIDED DOSE FREQUENCY UNKNOWN
     Route: 048
  11. RESLART [Concomitant]
     Indication: GASTRITIS
     Dosage: 600 MG, QD, DIVIDED DOSE FREQUENCY UNKNOWN
     Route: 048

REACTIONS (1)
  - Oedema [Recovering/Resolving]
